FAERS Safety Report 21955733 (Version 3)
Quarter: 2024Q4

REPORT INFORMATION
  Report Type: Spontaneous
  Country: ES (occurrence: ES)
  Receive Date: 20230206
  Receipt Date: 20241121
  Transmission Date: 20250114
  Serious: Yes (Other)
  Sender: AUROBINDO
  Company Number: ES-JNJFOC-20230131930

PATIENT
  Age: 74 Year
  Sex: Male

DRUGS (14)
  1. MELPHALAN [Suspect]
     Active Substance: MELPHALAN
     Indication: Plasma cell myeloma
     Dosage: 4 CYCLES
     Route: 058
  2. PREDNISONE [Suspect]
     Active Substance: PREDNISONE
     Indication: Plasma cell myeloma
     Dosage: 4 CYCLES
     Route: 058
  3. VELCADE [Suspect]
     Active Substance: BORTEZOMIB
     Indication: Plasma cell myeloma
     Dosage: 4 CYCLES
     Route: 058
  4. LENALIDOMIDE [Concomitant]
     Active Substance: LENALIDOMIDE
     Indication: Plasma cell myeloma
     Dosage: FIRST CYCLE
     Route: 065
  5. VINCRISTINE [Concomitant]
     Active Substance: VINCRISTINE
     Indication: Plasma cell myeloma
     Dosage: UNK
     Route: 065
  6. CARMUSTINE [Concomitant]
     Active Substance: CARMUSTINE
     Indication: Plasma cell myeloma
     Dosage: UNK
     Route: 065
  7. CYCLOPHOSPHAMIDE [Concomitant]
     Active Substance: CYCLOPHOSPHAMIDE
     Indication: Plasma cell myeloma
     Dosage: UNK
     Route: 065
  8. DOXORUBICIN [Concomitant]
     Active Substance: DOXORUBICIN
     Indication: Plasma cell myeloma
     Dosage: UNK
     Route: 065
  9. DEXAMETHASONE [Concomitant]
     Active Substance: DEXAMETHASONE
     Indication: Plasma cell myeloma
     Dosage: UNK
     Route: 065
  10. POMALIDOMIDE [Concomitant]
     Active Substance: POMALIDOMIDE
     Indication: Plasma cell myeloma
     Dosage: EIGHT CYCLES
     Route: 065
  11. BELANTAMAB MAFODOTIN [Concomitant]
     Active Substance: BELANTAMAB MAFODOTIN
     Indication: Plasma cell myeloma
     Dosage: 2.5 MG/KG
     Route: 065
  12. BELANTAMAB MAFODOTIN [Concomitant]
     Active Substance: BELANTAMAB MAFODOTIN
     Dosage: 1.92 MG/KG  REDUCED
     Route: 065
  13. BELANTAMAB MAFODOTIN [Concomitant]
     Active Substance: BELANTAMAB MAFODOTIN
     Dosage: 2.5 MG/KG
     Route: 065
  14. BELANTAMAB MAFODOTIN [Concomitant]
     Active Substance: BELANTAMAB MAFODOTIN
     Dosage: THIRTEEN CYCLES
     Route: 065

REACTIONS (5)
  - Thrombocytopenia [Unknown]
  - Diarrhoea [Unknown]
  - Hypophosphataemia [Unknown]
  - Paraesthesia [Unknown]
  - Toxicity to various agents [Unknown]

NARRATIVE: CASE EVENT DATE: 20110201
